FAERS Safety Report 10051776 (Version 1)
Quarter: 2014Q2

REPORT INFORMATION
  Report Type: Spontaneous
  Country: FR (occurrence: FR)
  Receive Date: 20140402
  Receipt Date: 20140402
  Transmission Date: 20141212
  Serious: Yes (Hospitalization)
  Sender: FDA-Public Use
  Company Number: FR-ROCHE-1369822

PATIENT
  Age: 86 Year
  Sex: Female

DRUGS (1)
  1. ROCEPHINE [Suspect]
     Indication: URINARY TRACT INFECTION
     Route: 042
     Dates: start: 20140110, end: 20140116

REACTIONS (2)
  - Drug reaction with eosinophilia and systemic symptoms [Recovered/Resolved]
  - Drug hypersensitivity [Unknown]
